FAERS Safety Report 23396512 (Version 1)
Quarter: 2024Q1

REPORT INFORMATION
  Report Type: Spontaneous
  Country: US (occurrence: US)
  Receive Date: 20240112
  Receipt Date: 20240112
  Transmission Date: 20240410
  Serious: Yes (Life-Threatening, Hospitalization)
  Sender: FDA-Public Use
  Company Number: US-Vifor (International) Inc.-VIT-2024-00305

PATIENT
  Age: 51 Year
  Sex: Male
  Weight: 101.5 kg

DRUGS (4)
  1. MIRCERA [Suspect]
     Active Substance: METHOXY POLYETHYLENE GLYCOL-EPOETIN BETA
     Indication: Nephrogenic anaemia
     Route: 040
     Dates: start: 20230902
  2. MIRCERA [Suspect]
     Active Substance: METHOXY POLYETHYLENE GLYCOL-EPOETIN BETA
     Dosage: 6TH INCREASED DOSE
     Route: 040
     Dates: start: 20231222, end: 20231222
  3. VENOFER [Suspect]
     Active Substance: IRON SUCROSE
     Indication: Product used for unknown indication
     Route: 042
     Dates: start: 20230902
  4. CALCITRIOL [Concomitant]
     Active Substance: CALCITRIOL
     Route: 048
     Dates: start: 20230831

REACTIONS (4)
  - Drug hypersensitivity [Unknown]
  - Cough [Unknown]
  - Dyspnoea [Unknown]
  - Pulse absent [Unknown]

NARRATIVE: CASE EVENT DATE: 20231222
